FAERS Safety Report 16267335 (Version 1)
Quarter: 2019Q2

REPORT INFORMATION
  Report Type: Spontaneous
  Country: US (occurrence: US)
  Receive Date: 20190502
  Receipt Date: 20190502
  Transmission Date: 20190711
  Serious: Yes (Other)
  Sender: FDA-Public Use
  Company Number: US-INCYTE CORPORATION-2019IN004257

PATIENT

DRUGS (2)
  1. JAKAFI [Suspect]
     Active Substance: RUXOLITINIB
     Dosage: 10 MILLIGRAM, BID
     Route: 048
     Dates: start: 201904
  2. JAKAFI [Suspect]
     Active Substance: RUXOLITINIB
     Indication: POLYCYTHAEMIA VERA
     Dosage: 20 MILLIGRAM, BID
     Route: 048
     Dates: start: 20181205, end: 201904

REACTIONS (4)
  - Neutropenia [Unknown]
  - Platelet count decreased [Unknown]
  - Splenomegaly [Unknown]
  - Leukocytosis [Unknown]

NARRATIVE: CASE EVENT DATE: 20190425
